FAERS Safety Report 6331567-4 (Version None)
Quarter: 2009Q3

REPORT INFORMATION
  Report Type: 
  Country: None (occurrence: None)
  Receive Date: 20090827
  Receipt Date: 20090814
  Transmission Date: 20100115
  Serious: Yes (Other)
  Sender: FDA-Public Use
  Company Number: US-BAYER-200920395NA

PATIENT
  Age: 53 Year
  Sex: Male

DRUGS (17)
  1. MAGNEVIST [Suspect]
     Indication: NUCLEAR MAGNETIC RESONANCE IMAGING
  2. OMNISCAN [Suspect]
     Indication: NUCLEAR MAGNETIC RESONANCE IMAGING
     Dosage: AS USED: 20 ML
     Route: 042
     Dates: start: 20041101, end: 20041101
  3. OMNISCAN [Suspect]
     Dosage: AS USED: 20 ML
     Route: 042
     Dates: start: 20041101, end: 20041101
  4. OMNISCAN [Suspect]
     Dosage: TOTAL DAILY DOSE: 20 ML
     Route: 042
     Dates: start: 20041115, end: 20041115
  5. OMNISCAN [Suspect]
     Dates: start: 20060101, end: 20060101
  6. OMNISCAN [Suspect]
     Dates: start: 20040826, end: 20040826
  7. OMNISCAN [Suspect]
     Dates: start: 20040817, end: 20040817
  8. OMNISCAN [Suspect]
     Dosage: AS USED: 15 ML
     Dates: start: 20060821, end: 20060821
  9. OMNISCAN [Suspect]
     Dosage: TOTAL DAILY DOSE: 20 ML
     Route: 042
     Dates: start: 20050419, end: 20050419
  10. OMNISCAN [Suspect]
     Dosage: AS USED: 15 ML
     Dates: start: 20060822, end: 20060822
  11. OPTIMARK [Suspect]
     Indication: NUCLEAR MAGNETIC RESONANCE IMAGING
  12. MULTIHANCE [Suspect]
     Indication: NUCLEAR MAGNETIC RESONANCE IMAGING
  13. PROHANCE [Suspect]
     Indication: NUCLEAR MAGNETIC RESONANCE IMAGING
  14. NEXAVAR [Concomitant]
     Indication: METASTATIC RENAL CELL CARCINOMA
     Dates: start: 20061009, end: 20070622
  15. THALIDOMIDE [Concomitant]
     Indication: METASTATIC RENAL CELL CARCINOMA
     Dates: start: 20050823, end: 20060517
  16. ACTOS [Concomitant]
     Indication: DIABETES MELLITUS
     Dates: start: 20031101, end: 20040901
  17. ACTOS [Concomitant]
     Dates: start: 20050620, end: 20060517

REACTIONS (15)
  - ANXIETY [None]
  - ASTHENIA [None]
  - DEFORMITY [None]
  - EMOTIONAL DISTRESS [None]
  - EXTREMITY CONTRACTURE [None]
  - FIBROSIS [None]
  - GENERAL PHYSICAL HEALTH DETERIORATION [None]
  - JOINT RANGE OF MOTION DECREASED [None]
  - JOINT STIFFNESS [None]
  - MOBILITY DECREASED [None]
  - MUSCULAR WEAKNESS [None]
  - NEPHROGENIC SYSTEMIC FIBROSIS [None]
  - PAIN [None]
  - SCAR [None]
  - SKIN FIBROSIS [None]
